FAERS Safety Report 13645484 (Version 1)
Quarter: 2017Q2

REPORT INFORMATION
  Report Type: Report from Study
  Country: MX (occurrence: MX)
  Receive Date: 20170613
  Receipt Date: 20170613
  Transmission Date: 20170830
  Serious: Yes (Other)
  Sender: FDA-Public Use
  Company Number: PHHY2017MX085488

PATIENT
  Age: 8 Year
  Sex: Female

DRUGS (1)
  1. RITALIN [Suspect]
     Active Substance: METHYLPHENIDATE HYDROCHLORIDE
     Indication: ATTENTION DEFICIT/HYPERACTIVITY DISORDER
     Dosage: 0.75 DF, BID (3/4 AT 8:00 AM AND ? AT 3:00 PM)
     Route: 065
     Dates: start: 20170602

REACTIONS (8)
  - Major depression [Unknown]
  - Crying [Unknown]
  - Aggression [Not Recovered/Not Resolved]
  - Headache [Unknown]
  - Depressed mood [Unknown]
  - Self-injurious ideation [Unknown]
  - Disturbance in attention [Unknown]
  - Wrong technique in product usage process [Not Recovered/Not Resolved]

NARRATIVE: CASE EVENT DATE: 20170602
